FAERS Safety Report 15043673 (Version 1)
Quarter: 2018Q2

REPORT INFORMATION
  Report Type: Spontaneous
  Country: US (occurrence: US)
  Receive Date: 20180621
  Receipt Date: 20180621
  Transmission Date: 20180711
  Serious: No
  Sender: FDA-Public Use
  Company Number: US-WELLSTAT THERAPEUTICS CORPORATION-2049771

PATIENT
  Weight: 4.76 kg

DRUGS (1)
  1. XURIDEN [Suspect]
     Active Substance: URIDINE TRIACETATE
     Dates: start: 20180405

REACTIONS (1)
  - Metabolic alkalosis [Unknown]

NARRATIVE: CASE EVENT DATE: 20180408
